FAERS Safety Report 8922669 (Version 2)
Quarter: 2012Q4

REPORT INFORMATION
  Report Type: 
  Country: FR (occurrence: FR)
  Receive Date: 20121125
  Receipt Date: 20121221
  Transmission Date: 20130627
  Serious: Yes (Hospitalization)
  Sender: FDA-Public Use
  Company Number: FR-BRISTOL-MYERS SQUIBB COMPANY-17129529

PATIENT

DRUGS (2)
  1. BUSPAR [Suspect]
     Indication: OBSESSIVE-COMPULSIVE DISORDER
  2. RISPERDAL [Suspect]
     Indication: OBSESSIVE-COMPULSIVE DISORDER
     Dosage: Film coated tabs

REACTIONS (2)
  - Parkinsonism [Recovered/Resolved]
  - Panic attack [Recovered/Resolved]
